FAERS Safety Report 10533665 (Version 3)
Quarter: 2015Q3

REPORT INFORMATION
  Report Type: Report from Study
  Country: AU (occurrence: AU)
  Receive Date: 20141022
  Receipt Date: 20150917
  Transmission Date: 20151125
  Serious: No
  Sender: FDA-Public Use
  Company Number: AU-UCBSA-2014005063

PATIENT
  Age: 27 Year
  Sex: Male
  Weight: 123.4 kg

DRUGS (4)
  1. TESTOSTERONE SUPPLEMENT [Concomitant]
     Indication: BLOOD TESTOSTERONE DECREASED
     Dosage: 1 MG, AS NEEDED (PRN)
     Route: 030
     Dates: start: 20140327
  2. *CARBAMAZEPINE [Suspect]
     Active Substance: CARBAMAZEPINE
     Indication: EPILEPSY
     Dosage: UNK UNK, 2X/DAY (BID)
     Route: 048
     Dates: start: 20120824
  3. QUETIAPINE [Concomitant]
     Active Substance: QUETIAPINE
     Indication: INSOMNIA
     Dosage: 12.5 MG, AS NEEDED (PRN)
     Route: 048
     Dates: start: 201210
  4. OXYNORM [Concomitant]
     Active Substance: OXYCODONE HYDROCHLORIDE
     Indication: MUSCLE STRAIN
     Dosage: UNK

REACTIONS (1)
  - Alanine aminotransferase increased [Recovered/Resolved]

NARRATIVE: CASE EVENT DATE: 20140508
